FAERS Safety Report 25799751 (Version 3)
Quarter: 2025Q4

REPORT INFORMATION
  Report Type: Spontaneous
  Country: GB (occurrence: GB)
  Receive Date: 20250914
  Receipt Date: 20251215
  Transmission Date: 20260118
  Serious: Yes (Life-Threatening, Hospitalization, Other)
  Sender: TEVA
  Company Number: GB-TEVA-VS-3371431

PATIENT
  Age: 31 Year
  Sex: Male

DRUGS (2)
  1. LAMOTRIGINE [Suspect]
     Active Substance: LAMOTRIGINE
     Indication: Seizure
     Dosage: WITH PLANNED STANDARD TITRATION OF MAINTENANCE DOSE OF 100-200MG PER DAY
     Route: 065
  2. LEVETIRACETAM [Suspect]
     Active Substance: LEVETIRACETAM
     Indication: Generalised tonic-clonic seizure
     Route: 065

REACTIONS (3)
  - Skin necrosis [Unknown]
  - Affective disorder [Unknown]
  - Haemophagocytic lymphohistiocytosis [Unknown]
